FAERS Safety Report 7031713 (Version 4)
Quarter: 2013Q1

REPORT INFORMATION
  Report Type: Spontaneous
  Country: US (occurrence: US)
  Receive Date: 20090624
  Receipt Date: 20130111
  Transmission Date: 20140127
  Serious: Yes (Death, Hospitalization)
  Sender: FDA-Public Use
  Company Number: US-ELI_LILLY_AND_COMPANY-US200906004681

PATIENT
  Age: 77 Year
  Sex: Female
  Weight: 68.03 kg

DRUGS (17)
  1. BYETTA [Suspect]
     Dosage: UNK, UNK
     Dates: start: 20051212, end: 20060818
  2. AMARYL [Concomitant]
  3. AVANDAMET [Concomitant]
  4. AVAPRO [Concomitant]
  5. FUROSEMIDE [Concomitant]
  6. TOPROL [Concomitant]
  7. CLONIDINE [Concomitant]
  8. DIGITEK [Concomitant]
  9. KLOR-CON [Concomitant]
  10. ASPIRIN [Concomitant]
  11. OCUVITE [Concomitant]
  12. TYLENOL                                 /SCH/ [Concomitant]
  13. BENADRYL [Concomitant]
  14. ACTOS                                   /AUS/ [Concomitant]
     Dosage: UNK, UNKNOWN
  15. FENTANYL [Concomitant]
     Dosage: UNK, UNKNOWN
  16. LEVEMIR [Concomitant]
     Dosage: UNK, UNKNOWN
  17. PERCOCET [Concomitant]
     Dosage: UNK, UNKNOWN

REACTIONS (5)
  - Pancreatic carcinoma metastatic [Fatal]
  - Duodenal ulcer [Unknown]
  - Pyrexia [Unknown]
  - Renal injury [Unknown]
  - Off label use [Recovered/Resolved]
